FAERS Safety Report 17530049 (Version 3)
Quarter: 2020Q1

REPORT INFORMATION
  Report Type: Report from Study
  Country: US (occurrence: US)
  Receive Date: 20200311
  Receipt Date: 20200316
  Transmission Date: 20200409
  Serious: Yes (Hospitalization)
  Sender: FDA-Public Use
  Company Number: US-EISAI MEDICAL RESEARCH-EC-2020-069809

PATIENT
  Age: 70 Year
  Sex: Male
  Weight: 64.4 kg

DRUGS (10)
  1. LENVIMA [Suspect]
     Active Substance: LENVATINIB
     Indication: RENAL CANCER
     Route: 048
     Dates: start: 20200118, end: 20200130
  2. LENVIMA [Suspect]
     Active Substance: LENVATINIB
     Route: 048
     Dates: start: 20200205, end: 202002
  3. GAMMAPLEX [Concomitant]
     Active Substance: HUMAN IMMUNOGLOBULIN G
  4. PANZYGA [Concomitant]
     Active Substance: HUMAN IMMUNOGLOBULIN G
  5. DULOXETINE. [Concomitant]
     Active Substance: DULOXETINE
  6. GLIMEPIRIDE. [Concomitant]
     Active Substance: GLIMEPIRIDE
  7. EPINEPHRINE. [Concomitant]
     Active Substance: EPINEPHRINE
  8. AFINITOR [Concomitant]
     Active Substance: EVEROLIMUS
  9. OCTAGAM IMMUNE GLOBULIN (HUMAN) [Concomitant]
     Active Substance: HUMAN IMMUNOGLOBULIN G
  10. CABOMETYX [Concomitant]
     Active Substance: CABOZANTINIB S-MALATE

REACTIONS (15)
  - Myocardial necrosis marker increased [Unknown]
  - Diarrhoea [Unknown]
  - Pain [Unknown]
  - Renal impairment [Unknown]
  - Fall [Unknown]
  - Gait inability [Unknown]
  - Hepatic enzyme increased [Unknown]
  - Head injury [Unknown]
  - Mental impairment [Recovered/Resolved]
  - Dysphonia [Recovering/Resolving]
  - Decreased appetite [Unknown]
  - Dizziness [Unknown]
  - Confusional state [Recovering/Resolving]
  - Loss of consciousness [Unknown]
  - Nausea [Unknown]

NARRATIVE: CASE EVENT DATE: 202001
